FAERS Safety Report 5367775-9 (Version None)
Quarter: 2007Q2

REPORT INFORMATION
  Report Type: 
  Country: None (occurrence: None)
  Receive Date: 20070622
  Receipt Date: 20070402
  Transmission Date: 20071010
  Serious: Yes (Other)
  Sender: FDA-Public Use
  Company Number: US-BRISTOL-MYERS SQUIBB COMPANY-13735915

PATIENT
  Age: 87 Year
  Sex: Male
  Weight: 77 kg

DRUGS (4)
  1. MUTAMYCIN [Suspect]
  2. ARICEPT [Concomitant]
  3. NAMENDA [Concomitant]
  4. LOVASTATIN [Concomitant]

REACTIONS (1)
  - MALIGNANT NEOPLASM PROGRESSION [None]
